FAERS Safety Report 5638868-3 (Version None)
Quarter: 2008Q1

REPORT INFORMATION
  Report Type: 
  Country: None (occurrence: None)
  Receive Date: 20080222
  Receipt Date: 20080222
  Transmission Date: 20080703
  Serious: Yes (Other)
  Sender: FDA-Public Use
  Company Number: None

PATIENT
  Age: 33 Year
  Sex: Female
  Weight: 50.8029 kg

DRUGS (1)
  1. FENTANYL PATCH 50MCG/HR [Suspect]
     Indication: PAIN
     Dosage: 50MCG/HR CHANGE EVERY 72HRS TRANSDERMAL
     Route: 062
     Dates: start: 20080217, end: 20080220

REACTIONS (11)
  - ASTHENIA [None]
  - BLOOD PRESSURE DECREASED [None]
  - DIZZINESS [None]
  - FEELING ABNORMAL [None]
  - HEADACHE [None]
  - LIVEDO RETICULARIS [None]
  - OVERDOSE [None]
  - PALPITATIONS [None]
  - PHARMACEUTICAL PRODUCT COMPLAINT [None]
  - TREMOR [None]
  - VOMITING [None]
